FAERS Safety Report 16784185 (Version 2)
Quarter: 2019Q4

REPORT INFORMATION
  Report Type: Spontaneous
  Country: US (occurrence: US)
  Receive Date: 20190909
  Receipt Date: 20191217
  Transmission Date: 20200122
  Serious: Yes (Other)
  Sender: FDA-Public Use
  Company Number: US-SA-2019SA244181

PATIENT
  Age: 56 Year
  Sex: Male

DRUGS (2)
  1. LANTUS SOLOSTAR [Suspect]
     Active Substance: INSULIN GLARGINE
     Indication: TYPE 2 DIABETES MELLITUS
     Dosage: 10 U, HS
     Route: 065
     Dates: start: 20190820
  2. TRULICITY [Concomitant]
     Active Substance: DULAGLUTIDE
     Route: 065

REACTIONS (9)
  - Hyperhidrosis [Unknown]
  - Product storage error [Unknown]
  - Device operational issue [Unknown]
  - Flushing [Unknown]
  - Wrong technique in device usage process [Unknown]
  - Blood glucose increased [Unknown]
  - Loss of consciousness [Unknown]
  - Feeling abnormal [Unknown]
  - Extra dose administered [Unknown]
